FAERS Safety Report 15904533 (Version 1)
Quarter: 2019Q1

REPORT INFORMATION
  Report Type: Spontaneous
  Country: US (occurrence: US)
  Receive Date: 20190109
  Receipt Date: 20190109
  Transmission Date: 20190417
  Serious: Yes (Hospitalization)
  Sender: FDA-Public Use
  Company Number: None

PATIENT
  Age: 77 Year
  Sex: Male
  Weight: 93 kg

DRUGS (1)
  1. CLOPIDOGREL [Suspect]
     Active Substance: CLOPIDOGREL BISULFATE
     Indication: VASCULAR OPERATION
     Route: 048
     Dates: start: 20181213, end: 20190102

REACTIONS (2)
  - Gastric haemorrhage [None]
  - Rectal haemorrhage [None]

NARRATIVE: CASE EVENT DATE: 20190102
